FAERS Safety Report 5896551-3 (Version None)
Quarter: 2008Q3

REPORT INFORMATION
  Report Type: 
  Country: None (occurrence: None)
  Receive Date: 20080924
  Receipt Date: 20070914
  Transmission Date: 20090109
  Serious: No
  Sender: FDA-Public Use
  Company Number: US-BAYER-200712504BWH

PATIENT
  Age: 82 Year
  Sex: Female
  Weight: 68 kg

DRUGS (3)
  1. AVELOX [Suspect]
     Indication: UPPER RESPIRATORY TRACT INFECTION
     Dosage: TOTAL DAILY DOSE: 400 MG  UNIT DOSE: 400 MG
     Route: 048
     Dates: start: 20070725
  2. ARIMIDEX [Suspect]
     Indication: DRUG USE FOR UNKNOWN INDICATION
  3. ARIMIDEX [Concomitant]

REACTIONS (1)
  - FEELING HOT [None]
